FAERS Safety Report 17352757 (Version 1)
Quarter: 2020Q1

REPORT INFORMATION
  Report Type: Report from Study
  Country: PL (occurrence: PL)
  Receive Date: 20200131
  Receipt Date: 20200131
  Transmission Date: 20200409
  Serious: Yes (Other)
  Sender: FDA-Public Use
  Company Number: PL-REGENERON PHARMACEUTICALS, INC.-2020-15508

PATIENT

DRUGS (2)
  1. EYLEA [Suspect]
     Active Substance: AFLIBERCEPT
     Dosage: RECEIVED 19TH EYLEA INJECTION
     Dates: start: 20200120, end: 20200120
  2. EYLEA [Suspect]
     Active Substance: AFLIBERCEPT
     Indication: NEOVASCULAR AGE-RELATED MACULAR DEGENERATION
     Dosage: 2 MG AFLIBERCEPT, EQUIVALENT TO 50MCL OF SOLUTION
     Route: 031
     Dates: start: 20160531

REACTIONS (5)
  - Corneal defect [Recovering/Resolving]
  - Eye pain [Unknown]
  - Purulent discharge [Unknown]
  - Visual acuity reduced [Unknown]
  - Corneal disorder [Unknown]

NARRATIVE: CASE EVENT DATE: 20200120
